FAERS Safety Report 18265459 (Version 1)
Quarter: 2020Q3

REPORT INFORMATION
  Report Type: Other
  Country: US (occurrence: US)
  Receive Date: 20200914
  Receipt Date: 20200914
  Transmission Date: 20201103
  Serious: No
  Sender: FDA-Public Use
  Company Number: US-LEADIANT BIOSCIENCES INC-2020STPI000230

PATIENT
  Age: 42 Year
  Sex: Female

DRUGS (17)
  1. LEVETIRACETAM. [Concomitant]
     Active Substance: LEVETIRACETAM
  2. LUTERA [Concomitant]
     Active Substance: ETHINYL ESTRADIOL\LEVONORGESTREL
  3. ONDANSETRON [Concomitant]
     Active Substance: ONDANSETRON
  4. MOMETASONE [Concomitant]
     Active Substance: MOMETASONE
  5. NORTRIPTYLIN [Concomitant]
     Active Substance: NORTRIPTYLINE
  6. LIDO/PRILOCAINE [Concomitant]
  7. LORAZEPAM. [Concomitant]
     Active Substance: LORAZEPAM
  8. PSEUDOEPHEDRINE. [Concomitant]
     Active Substance: PSEUDOEPHEDRINE HYDROCHLORIDE
  9. SUMATRIPTAN. [Concomitant]
     Active Substance: SUMATRIPTAN
  10. HYDROCODONE/IBUPROFEN [Concomitant]
     Active Substance: HYDROCODONE\IBUPROFEN
  11. PANTOPRAZOLE [Concomitant]
     Active Substance: PANTOPRAZOLE
  12. PROCHLORPERAZ [Concomitant]
     Active Substance: PROCHLORPERAZINE MALEATE
  13. ACYCLOVIR STADA [Concomitant]
  14. DEXAMETHASONE. [Concomitant]
     Active Substance: DEXAMETHASONE
  15. ENOXAPARIN [Concomitant]
     Active Substance: ENOXAPARIN
  16. MATULANE [Suspect]
     Active Substance: PROCARBAZINE HYDROCHLORIDE
     Indication: BRAIN NEOPLASM MALIGNANT
     Dosage: 50 MG, 2CAPSULES, QPMX14 DAYS 8?21 OF EACH CYCLE
     Route: 048
     Dates: start: 20200225
  17. FLUOXETINE [Concomitant]
     Active Substance: FLUOXETINE HYDROCHLORIDE

REACTIONS (1)
  - Disease progression [Unknown]

NARRATIVE: CASE EVENT DATE: 20200514
